FAERS Safety Report 24998746 (Version 1)
Quarter: 2025Q1

REPORT INFORMATION
  Report Type: Spontaneous
  Country: US (occurrence: US)
  Receive Date: 20250222
  Receipt Date: 20250222
  Transmission Date: 20250408
  Serious: No
  Sender: SANOFI AVENTIS
  Company Number: US-SA-2025SA050994

PATIENT
  Sex: Female
  Weight: 72.5 kg

DRUGS (6)
  1. DUPIXENT [Suspect]
     Active Substance: DUPILUMAB
     Indication: Dermatitis atopic
     Dosage: 300 MG, QOW
     Route: 058
  2. HUMALOG [Concomitant]
     Active Substance: INSULIN LISPRO
  3. GEMTESA [Concomitant]
     Active Substance: VIBEGRON
  4. MOUNJARO [Concomitant]
     Active Substance: TIRZEPATIDE
  5. ATORVASTATIN [Concomitant]
     Active Substance: ATORVASTATIN
  6. NEBIVOLOL [Concomitant]
     Active Substance: NEBIVOLOL

REACTIONS (1)
  - Visual impairment [Unknown]
